FAERS Safety Report 13527986 (Version 1)
Quarter: 2017Q2

REPORT INFORMATION
  Report Type: Spontaneous
  Country: US (occurrence: US)
  Receive Date: 20170509
  Receipt Date: 20170509
  Transmission Date: 20170830
  Serious: No
  Sender: FDA-Public Use
  Company Number: US-PFIZER INC-2017202125

PATIENT
  Sex: Female

DRUGS (1)
  1. XELJANZ XR [Suspect]
     Active Substance: TOFACITINIB CITRATE
     Dosage: 11 MG, UNK

REACTIONS (10)
  - Myalgia [Unknown]
  - Joint stiffness [Unknown]
  - Arthralgia [Unknown]
  - Asthenia [Unknown]
  - Hyperaesthesia [Unknown]
  - Pain in extremity [Unknown]
  - Musculoskeletal stiffness [Recovering/Resolving]
  - Muscle spasms [Unknown]
  - Fatigue [Recovering/Resolving]
  - Limb discomfort [Unknown]
